FAERS Safety Report 7095888-2 (Version None)
Quarter: 2010Q4

REPORT INFORMATION
  Report Type: 
  Country: None (occurrence: None)
  Receive Date: 20101109
  Receipt Date: 20101109
  Transmission Date: 20110411
  Serious: Yes (Hospitalization)
  Sender: FDA-Public Use
  Company Number: None

PATIENT
  Sex: Male
  Weight: 79 kg

DRUGS (9)
  1. OXCARBAZEPINE [Suspect]
     Indication: CONVULSION
     Dosage: 900 MG BID PO
     Route: 048
  2. OXYCODONE HCL AND ACETAMINOPHEN [Concomitant]
  3. ALPRAZOLAM [Concomitant]
  4. CEPHALEXIN [Concomitant]
  5. LEVETIRACETAM [Concomitant]
  6. LISINOPRIL [Concomitant]
  7. MULTI-VITAMIN [Concomitant]
  8. OXYCODONE HCL EXTENDED-RELEASE [Concomitant]
  9. WARFARIN [Concomitant]

REACTIONS (3)
  - CONFUSIONAL STATE [None]
  - HYPONATRAEMIA [None]
  - MENTAL STATUS CHANGES [None]
